FAERS Safety Report 5622690-8 (Version None)
Quarter: 2008Q1

REPORT INFORMATION
  Report Type: 
  Country: None (occurrence: None)
  Receive Date: 20080212
  Receipt Date: 20080130
  Transmission Date: 20080703
  Serious: Yes (Other)
  Sender: FDA-Public Use
  Company Number: US-BAYER-200812847NA

PATIENT
  Age: 24 Year
  Sex: Female
  Weight: 45 kg

DRUGS (1)
  1. MIRENA [Suspect]
     Indication: CONTRACEPTION
     Route: 015
     Dates: end: 20080102

REACTIONS (3)
  - IUD MIGRATION [None]
  - PELVIC PAIN [None]
  - VAGINAL HAEMORRHAGE [None]
